FAERS Safety Report 16100202 (Version 1)
Quarter: 2019Q1

REPORT INFORMATION
  Report Type: Spontaneous
  Country: US (occurrence: US)
  Receive Date: 20190321
  Receipt Date: 20190321
  Transmission Date: 20190418
  Serious: Yes (Other)
  Sender: FDA-Public Use
  Company Number: US-TEVA-2019-US-1028480

PATIENT
  Sex: Male

DRUGS (1)
  1. TAMSULOSIN [Suspect]
     Active Substance: TAMSULOSIN
     Route: 065

REACTIONS (22)
  - Mental impairment [Recovering/Resolving]
  - Depression [Recovering/Resolving]
  - Urinary tract infection [Recovering/Resolving]
  - Asthenia [Recovering/Resolving]
  - Erectile dysfunction [Not Recovered/Not Resolved]
  - Calculus bladder [Recovering/Resolving]
  - Blood urine present [Recovering/Resolving]
  - Feelings of worthlessness [Recovering/Resolving]
  - Dizziness [Recovering/Resolving]
  - Anger [Recovering/Resolving]
  - Fatigue [Recovering/Resolving]
  - Decreased appetite [Recovering/Resolving]
  - Abdominal pain [Recovering/Resolving]
  - Chest pain [Recovering/Resolving]
  - Weight decreased [Recovering/Resolving]
  - Suicidal ideation [Recovering/Resolving]
  - Product label issue [Unknown]
  - Depressed mood [Recovering/Resolving]
  - Back pain [Recovering/Resolving]
  - Vision blurred [Recovering/Resolving]
  - Tooth loss [Recovered/Resolved]
  - Mood swings [Recovering/Resolving]
